FAERS Safety Report 21906526 (Version 1)
Quarter: 2023Q1

REPORT INFORMATION
  Report Type: Spontaneous
  Country: US (occurrence: US)
  Receive Date: 20230125
  Receipt Date: 20230125
  Transmission Date: 20230417
  Serious: Yes (Other)
  Sender: FDA-Public Use
  Company Number: US-002147023-NVSC2023US014650

PATIENT
  Sex: Female

DRUGS (2)
  1. BEOVU [Suspect]
     Active Substance: BROLUCIZUMAB-DBLL
     Indication: Neovascular age-related macular degeneration
     Dosage: 6 MG
     Route: 065
     Dates: start: 20210119
  2. BEOVU [Suspect]
     Active Substance: BROLUCIZUMAB-DBLL
     Dosage: 6 MG
     Route: 065
     Dates: start: 20210316

REACTIONS (8)
  - Eye abscess [Unknown]
  - Retinal vasculitis [Unknown]
  - Retinal artery occlusion [Unknown]
  - Uveitis [Unknown]
  - Endophthalmitis [Unknown]
  - Blindness unilateral [Unknown]
  - Retinal haemorrhage [Unknown]
  - Eye pain [Unknown]
